FAERS Safety Report 17012446 (Version 1)
Quarter: 2019Q4

REPORT INFORMATION
  Report Type: Spontaneous
  Country: JP (occurrence: JP)
  Receive Date: 20191108
  Receipt Date: 20191108
  Transmission Date: 20200122
  Serious: Yes (Hospitalization)
  Sender: FDA-Public Use
  Company Number: JP-ROCHE-2466386

PATIENT
  Age: 75 Year
  Sex: Female
  Weight: 38.8 kg

DRUGS (5)
  1. VINCRISTINE SULFATE. [Concomitant]
     Active Substance: VINCRISTINE SULFATE
     Indication: GASTROINTESTINAL LYMPHOMA
     Route: 065
  2. DOXORUBICIN HYDROCHLORIDE. [Concomitant]
     Active Substance: DOXORUBICIN HYDROCHLORIDE
     Indication: GASTROINTESTINAL LYMPHOMA
     Route: 065
  3. RITUXAN [Suspect]
     Active Substance: RITUXIMAB
     Indication: GASTROINTESTINAL LYMPHOMA
     Route: 041
  4. CYCLOPHOSPHAMIDE. [Concomitant]
     Active Substance: CYCLOPHOSPHAMIDE
     Indication: GASTROINTESTINAL LYMPHOMA
     Route: 065
  5. PREDNISOLONE ACETATE. [Concomitant]
     Active Substance: PREDNISOLONE ACETATE
     Indication: GASTROINTESTINAL LYMPHOMA
     Route: 065

REACTIONS (1)
  - Small intestinal stenosis [Recovering/Resolving]
